FAERS Safety Report 15494209 (Version 2)
Quarter: 2019Q4

REPORT INFORMATION
  Report Type: Report from Study
  Country: US (occurrence: US)
  Receive Date: 20181012
  Receipt Date: 20191007
  Transmission Date: 20200122
  Serious: Yes (Other)
  Sender: FDA-Public Use
  Company Number: US-PFIZER INC-2018406544

PATIENT
  Age: 44 Year
  Sex: Male

DRUGS (2)
  1. SIROLIMUS. [Suspect]
     Active Substance: SIROLIMUS
     Indication: EAR MALFORMATION
     Dosage: UNK (AFTER EMBOLIZATION)
  2. SIROLIMUS. [Suspect]
     Active Substance: SIROLIMUS
     Indication: ARTERIOVENOUS MALFORMATION
     Dosage: UNK (1 MONTH BEFORE THEIR FIRST EMBOLIC PROCEDURE, WITH A TARGET TROUGH LEVEL OF 10 TO 15NG/ML)

REACTIONS (1)
  - Skin ulcer [Recovered/Resolved]
